FAERS Safety Report 20542044 (Version 1)
Quarter: 2022Q1

REPORT INFORMATION
  Report Type: Spontaneous
  Country: CA (occurrence: CA)
  Receive Date: 20220302
  Receipt Date: 20220302
  Transmission Date: 20220423
  Serious: Yes (Other)
  Sender: FDA-Public Use
  Company Number: CA-JNJFOC-20211158256

PATIENT
  Sex: Male

DRUGS (3)
  1. ERLEADA [Suspect]
     Active Substance: APALUTAMIDE
     Indication: Prostate cancer
     Dosage: 4 TABLETS A DAY
     Route: 048
     Dates: start: 202109
  2. ERLEADA [Suspect]
     Active Substance: APALUTAMIDE
     Dosage: 2 TABLETS A DAY
     Route: 048
     Dates: start: 202110
  3. ERLEADA [Suspect]
     Active Substance: APALUTAMIDE
     Dosage: 1 TABLETS A DAY
     Route: 048
     Dates: start: 20211123

REACTIONS (3)
  - Dysarthria [Unknown]
  - Incorrect dose administered [Unknown]
  - Off label use [Unknown]

NARRATIVE: CASE EVENT DATE: 20211001
